FAERS Safety Report 5232667-2 (Version None)
Quarter: 2007Q1

REPORT INFORMATION
  Report Type: 
  Country: None (occurrence: None)
  Receive Date: 20070206
  Receipt Date: 20070206
  Transmission Date: 20070707
  Serious: No
  Sender: FDA-Public Use
  Company Number: None

PATIENT
  Age: 59 Year
  Sex: Female
  Weight: 53.5244 kg

DRUGS (1)
  1. ZICAM [Suspect]

REACTIONS (4)
  - AGEUSIA [None]
  - ANOSMIA [None]
  - FEELING ABNORMAL [None]
  - NASAL CONGESTION [None]
